FAERS Safety Report 7010883-7 (Version None)
Quarter: 2010Q3

REPORT INFORMATION
  Report Type: 
  Country: None (occurrence: None)
  Receive Date: 20100923
  Receipt Date: 20100916
  Transmission Date: 20110219
  Serious: Yes (Life-Threatening)
  Sender: FDA-Public Use
  Company Number: GB-MERCK-1004GBR00124

PATIENT
  Age: 41 Year
  Sex: Female

DRUGS (17)
  1. EMEND [Suspect]
     Route: 048
     Dates: start: 20100427, end: 20100427
  2. CYCLOPHOSPHAMIDE [Concomitant]
     Route: 042
  3. LANSOPRAZOLE [Concomitant]
     Route: 048
  4. ONDANSETRON [Concomitant]
     Route: 048
  5. CALCICHEW D3 [Concomitant]
     Route: 048
  6. THIAMINE [Concomitant]
     Route: 048
  7. ACETAMINOPHEN [Concomitant]
     Route: 048
  8. TIMOLOL MALEATE [Concomitant]
     Route: 048
  9. DOMPERIDONE [Concomitant]
     Route: 048
  10. GABAPENTIN [Concomitant]
     Route: 048
  11. CARBAMAZEPINE [Concomitant]
     Route: 048
  12. LIDOCAINE [Concomitant]
     Indication: ULCER
     Route: 061
  13. PREDNISOLONE [Concomitant]
     Route: 048
  14. BUTYLSCOPOLAMINE BROMIDE [Concomitant]
     Route: 051
  15. LEVOMEPROMAZINE [Concomitant]
     Route: 051
  16. OXYCODONE [Concomitant]
     Route: 051
  17. MESNA [Concomitant]
     Route: 042

REACTIONS (7)
  - FACE OEDEMA [None]
  - HYPOTENSION [None]
  - MALAISE [None]
  - OEDEMA MOUTH [None]
  - PYREXIA [None]
  - RASH [None]
  - UNRESPONSIVE TO STIMULI [None]
